FAERS Safety Report 10493865 (Version 2)
Quarter: 2015Q1

REPORT INFORMATION
  Report Type: Spontaneous
  Country: US (occurrence: US)
  Receive Date: 20141003
  Receipt Date: 20150217
  Transmission Date: 20150720
  Serious: Yes (Hospitalization, Congenital Anomaly, Other)
  Sender: FDA-Public Use
  Company Number: US-ASTRAZENECA-2014SE73036

PATIENT
  Age: 12 Day
  Sex: Male

DRUGS (1)
  1. SEROQUEL [Suspect]
     Active Substance: QUETIAPINE FUMARATE
     Indication: BIPOLAR DISORDER
     Route: 064

REACTIONS (10)
  - Neonatal tachypnoea [Unknown]
  - Supraventricular tachycardia [Not Recovered/Not Resolved]
  - Cardiac failure congestive [Not Recovered/Not Resolved]
  - Congenital hydronephrosis [Not Recovered/Not Resolved]
  - Right ventricular hypertrophy [Unknown]
  - Blood potassium increased [Unknown]
  - Agitation neonatal [Unknown]
  - Abdominal distension [Unknown]
  - Poor feeding infant [Unknown]
  - Infantile colic [Unknown]

NARRATIVE: CASE EVENT DATE: 20140904
